FAERS Safety Report 4975558-4 (Version None)
Quarter: 2006Q2

REPORT INFORMATION
  Report Type: 
  Country: None (occurrence: None)
  Receive Date: 20060410
  Receipt Date: 20060328
  Transmission Date: 20061013
  Serious: Yes (Hospitalization)
  Sender: FDA-Public Use
  Company Number: 2006-140499-NL

PATIENT
  Age: 36 Year
  Sex: Female

DRUGS (3)
  1. MIRTAZAPINE [Suspect]
     Dosage: DF
     Dates: start: 20031210, end: 20031217
  2. LOETTE [Concomitant]
  3. ZOLPIDEM TARTRATE [Concomitant]

REACTIONS (3)
  - AGRANULOCYTOSIS [None]
  - PHARYNGOLARYNGEAL PAIN [None]
  - PYREXIA [None]
